FAERS Safety Report 5871032-1 (Version None)
Quarter: 2008Q3

REPORT INFORMATION
  Report Type: 
  Country: None (occurrence: None)
  Receive Date: 20080829
  Receipt Date: 20080819
  Transmission Date: 20090109
  Serious: Yes (Hospitalization)
  Sender: FDA-Public Use
  Company Number: 237851J08USA

PATIENT
  Age: 61 Year
  Sex: Female
  Weight: 113.3993 kg

DRUGS (5)
  1. REBIF [Suspect]
     Indication: MULTIPLE SCLEROSIS
     Dosage: 44 MCG, 3 IN 1 WEEKS, SUBCUTANEOUS
     Route: 058
     Dates: start: 20080521
  2. HYDROCHLOROTHIAZIDE/SPIRONOLACTONE (ALDACTAZIDE A) [Concomitant]
  3. POTASSIUM (POTASSIUM /00031401) [Concomitant]
  4. JANUMET (METFORMIN HYDROCHLORIDE) [Concomitant]
  5. COUMADIN [Concomitant]

REACTIONS (1)
  - URINARY TRACT INFECTION [None]
